FAERS Safety Report 15745315 (Version 1)
Quarter: 2018Q4

REPORT INFORMATION
  Report Type: Spontaneous
  Country: BR (occurrence: BR)
  Receive Date: 20181220
  Receipt Date: 20181220
  Transmission Date: 20190205
  Serious: Yes (Hospitalization, Other)
  Sender: FDA-Public Use
  Company Number: BR-SAKK-2018SA342574AA

PATIENT
  Age: 46 Year
  Sex: Male
  Weight: 76 kg

DRUGS (17)
  1. PREGABALIN. [Concomitant]
     Active Substance: PREGABALIN
     Indication: PRODUCT USED FOR UNKNOWN INDICATION
     Route: 065
  2. METHADONE HYDROCHLORIDE. [Concomitant]
     Active Substance: METHADONE HYDROCHLORIDE
     Indication: PRODUCT USED FOR UNKNOWN INDICATION
     Route: 065
  3. NAUSEDRON [Concomitant]
     Active Substance: ONDANSETRON HYDROCHLORIDE
     Indication: PRODUCT USED FOR UNKNOWN INDICATION
     Route: 065
  4. PREDNISONE. [Concomitant]
     Active Substance: PREDNISONE
     Route: 065
  5. ZYTIGA [Concomitant]
     Active Substance: ABIRATERONE ACETATE
     Indication: PRODUCT USED FOR UNKNOWN INDICATION
     Route: 065
  6. FAULDCARBO [Concomitant]
     Active Substance: CARBOPLATIN
     Dosage: 540,9876 MG
     Route: 042
  7. FAULDCARBO [Concomitant]
     Active Substance: CARBOPLATIN
     Dosage: 540.987 MG, UNK
     Route: 042
     Dates: start: 20180802
  8. NEULASTIM [Concomitant]
     Active Substance: PEGFILGRASTIM
     Indication: PRODUCT USED FOR UNKNOWN INDICATION
     Dosage: UNK
     Route: 058
     Dates: start: 20180802
  9. NOVALGINA [Concomitant]
     Active Substance: METAMIZOLE SODIUM
     Route: 065
  10. TAXOTERE [Suspect]
     Active Substance: DOCETAXEL
     Dosage: 111.96 MG
     Route: 042
     Dates: start: 20180802, end: 20180802
  11. FRONTAL [Concomitant]
     Active Substance: ALPRAZOLAM
     Indication: PRODUCT USED FOR UNKNOWN INDICATION
     Route: 065
  12. TAXOTERE [Suspect]
     Active Substance: DOCETAXEL
     Dosage: 111.96 UNK
     Route: 042
     Dates: start: 20180830, end: 20180830
  13. DEXAMETHASONE. [Concomitant]
     Active Substance: DEXAMETHASONE
     Indication: PRODUCT USED FOR UNKNOWN INDICATION
     Route: 065
  14. LAMOTRIGINE. [Concomitant]
     Active Substance: LAMOTRIGINE
     Indication: PRODUCT USED FOR UNKNOWN INDICATION
     Route: 065
  15. PANTOPRAZOLE [Concomitant]
     Active Substance: PANTOPRAZOLE
     Indication: PRODUCT USED FOR UNKNOWN INDICATION
     Route: 065
  16. LOPERAMIDE [Concomitant]
     Active Substance: LOPERAMIDE
     Route: 065
  17. XARELTO [Concomitant]
     Active Substance: RIVAROXABAN
     Indication: PRODUCT USED FOR UNKNOWN INDICATION
     Route: 065

REACTIONS (10)
  - Condition aggravated [Recovered/Resolved]
  - Metastases to liver [Recovered/Resolved]
  - Hepatic enzyme abnormal [Recovered/Resolved]
  - Diarrhoea [Recovered/Resolved]
  - Hypophosphataemia [Recovered/Resolved]
  - Mucosal inflammation [Recovered/Resolved]
  - Condition aggravated [Recovered/Resolved]
  - Pneumonia [Recovered/Resolved]
  - Pleural effusion [Recovered/Resolved]
  - Diarrhoea [Recovered/Resolved]

NARRATIVE: CASE EVENT DATE: 20180805
